FAERS Safety Report 5406578-3 (Version None)
Quarter: 2007Q3

REPORT INFORMATION
  Report Type: 
  Country: None (occurrence: None)
  Receive Date: 20070806
  Receipt Date: 20070731
  Transmission Date: 20080115
  Serious: Yes (Life-Threatening)
  Sender: FDA-Public Use
  Company Number: NL-PFIZER INC-2007063338

PATIENT
  Sex: Female
  Weight: 85 kg

DRUGS (4)
  1. PREGABALIN [Suspect]
     Indication: PAIN
     Route: 048
     Dates: start: 20070713, end: 20070715
  2. ZYRTEC [Concomitant]
     Route: 048
  3. OMEPRAZOLE [Concomitant]
     Route: 048
  4. SYMBICORT [Concomitant]

REACTIONS (2)
  - BRADYCARDIA [None]
  - SYNCOPE [None]
